FAERS Safety Report 9496240 (Version 4)
Quarter: 2013Q3

REPORT INFORMATION
  Report Type: Spontaneous
  Country: CH (occurrence: CH)
  Receive Date: 20130904
  Receipt Date: 20130918
  Transmission Date: 20140515
  Serious: Yes (Hospitalization, Disabling)
  Sender: FDA-Public Use
  Company Number: CH-BAYER-2013-106295

PATIENT
  Age: 28 Year
  Sex: Female

DRUGS (2)
  1. BETAFERON [Suspect]
     Indication: CLINICALLY ISOLATED SYNDROME
     Dosage: 250 ?G, QOD
     Route: 058
     Dates: start: 20130705
  2. BETAFERON [Suspect]
     Indication: MULTIPLE SCLEROSIS

REACTIONS (3)
  - Diplegia [None]
  - Aphasia [None]
  - Cerebral infarction [Unknown]
